FAERS Safety Report 4768674-3 (Version None)
Quarter: 2005Q3

REPORT INFORMATION
  Report Type: 
  Country: None (occurrence: None)
  Receive Date: 20050913
  Receipt Date: 20050902
  Transmission Date: 20060218
  Serious: Yes (Other)
  Sender: FDA-Public Use
  Company Number: 2005112241

PATIENT

DRUGS (1)
  1. NORVASC [Suspect]
     Indication: ILL-DEFINED DISORDER
     Dosage: 10 MG (10 MG), ORAL
     Route: 048

REACTIONS (3)
  - ASTHMA [None]
  - SENSATION OF FOREIGN BODY [None]
  - THROAT IRRITATION [None]
